FAERS Safety Report 5771924-8 (Version None)
Quarter: 2008Q2

REPORT INFORMATION
  Report Type: 
  Country: None (occurrence: None)
  Receive Date: 20080612
  Receipt Date: 20080612
  Transmission Date: 20081010
  Serious: Yes (Life-Threatening, Hospitalization)
  Sender: FDA-Public Use
  Company Number: None

PATIENT
  Age: 75 Year
  Sex: Male
  Weight: 115 kg

DRUGS (2)
  1. AZITHROMYCIN [Suspect]
     Dates: start: 20071118, end: 20071119
  2. LISINOPRIL [Suspect]
     Dates: start: 20050829, end: 20071119

REACTIONS (7)
  - BRONCHITIS [None]
  - DIZZINESS [None]
  - DYSPHAGIA [None]
  - DYSPNOEA [None]
  - MYALGIA [None]
  - SPEECH DISORDER [None]
  - SWOLLEN TONGUE [None]
